FAERS Safety Report 21617973 (Version 3)
Quarter: 2023Q1

REPORT INFORMATION
  Report Type: Report from Study
  Country: US (occurrence: US)
  Receive Date: 20221119
  Receipt Date: 20230206
  Transmission Date: 20230418
  Serious: Yes (Other)
  Sender: FDA-Public Use
  Company Number: US-ABBVIE-4206153

PATIENT
  Sex: Female

DRUGS (2)
  1. HUMIRA [Suspect]
     Active Substance: ADALIMUMAB
     Indication: Rheumatoid arthritis
     Dosage: CITRATE FREE
     Route: 058
  2. HUMIRA [Suspect]
     Active Substance: ADALIMUMAB
     Dosage: CITRATE FREE
     Route: 058

REACTIONS (7)
  - Foot deformity [Recovered/Resolved]
  - Pain in extremity [Not Recovered/Not Resolved]
  - Bone operation [Unknown]
  - Back pain [Not Recovered/Not Resolved]
  - Spinal operation [Unknown]
  - Pain in extremity [Recovering/Resolving]
  - Spinal disorder [Not Recovered/Not Resolved]
